FAERS Safety Report 6417643-6 (Version None)
Quarter: 2009Q4

REPORT INFORMATION
  Report Type: 
  Country: None (occurrence: None)
  Receive Date: 20091028
  Receipt Date: 20091019
  Transmission Date: 20100525
  Serious: Yes (Hospitalization, Other)
  Sender: FDA-Public Use
  Company Number: US-CELGENEUS-163-50794-09072150

PATIENT
  Sex: Male
  Weight: 97.61 kg

DRUGS (9)
  1. VIDAZA [Suspect]
     Indication: PROSTATE CANCER
     Route: 051
     Dates: start: 20090112, end: 20090720
  2. VIDAZA [Suspect]
     Route: 051
     Dates: start: 20090817
  3. PREDNISONE TAB [Suspect]
     Indication: PROSTATE CANCER
     Route: 065
  4. DOCETAXEL [Suspect]
     Indication: PROSTATE CANCER
     Route: 051
     Dates: start: 20090413, end: 20090720
  5. DOCETAXEL [Suspect]
     Route: 051
     Dates: start: 20090112, end: 20090126
  6. PLAVIX [Concomitant]
     Indication: DRUG USE FOR UNKNOWN INDICATION
     Route: 065
  7. ASPIRIN [Concomitant]
     Indication: DRUG USE FOR UNKNOWN INDICATION
     Route: 065
  8. FLUCONAZOLE [Concomitant]
     Route: 065
     Dates: start: 20090101
  9. FLUCONAZOLE [Concomitant]
     Indication: CHEST PAIN
     Route: 065
     Dates: start: 20090101, end: 20090101

REACTIONS (4)
  - ANAEMIA [None]
  - DYSPNOEA [None]
  - FEBRILE NEUTROPENIA [None]
  - OESOPHAGEAL CANDIDIASIS [None]
